FAERS Safety Report 10231404 (Version 1)
Quarter: 2014Q2

REPORT INFORMATION
  Report Type: Spontaneous
  Country: GB (occurrence: GB)
  Receive Date: 20140611
  Receipt Date: 20140611
  Transmission Date: 20141212
  Serious: Yes (Other)
  Sender: FDA-Public Use
  Company Number: GB-ACTAVIS-2014-12812

PATIENT
  Age: 53 Year
  Sex: Male

DRUGS (2)
  1. TRIAMCINOLONE ACETONIDE (AMALLC) [Suspect]
     Indication: CLUSTER HEADACHE
     Route: 065
  2. LIDOCAINE [Concomitant]
     Indication: CLUSTER HEADACHE
     Dosage: 1%
     Route: 065

REACTIONS (1)
  - Application site alopecia [Recovered/Resolved]
